FAERS Safety Report 24940869 (Version 1)
Quarter: 2025Q1

REPORT INFORMATION
  Report Type: Spontaneous
  Country: ES (occurrence: ES)
  Receive Date: 20250207
  Receipt Date: 20250207
  Transmission Date: 20250408
  Serious: Yes (Life-Threatening)
  Sender: ASTELLAS
  Company Number: None

PATIENT
  Age: 27 Year
  Sex: Male
  Weight: 87 kg

DRUGS (6)
  1. AMPHOTERICIN B [Suspect]
     Active Substance: AMPHOTERICIN B
     Indication: Abdominal sepsis
     Route: 050
     Dates: start: 20250129, end: 20250129
  2. MEROPENEM [Concomitant]
     Active Substance: MEROPENEM
     Indication: Abdominal sepsis
     Route: 050
     Dates: start: 20250127
  3. LINEZOLID [Concomitant]
     Active Substance: LINEZOLID
     Indication: Abdominal sepsis
     Route: 050
     Dates: start: 20250129
  4. ACETAMINOPHEN [Concomitant]
     Active Substance: ACETAMINOPHEN
     Indication: Abdominal sepsis
     Route: 050
     Dates: start: 20250127
  5. DEXKETOPROFENO NORMON [Concomitant]
     Indication: Abdominal sepsis
     Route: 050
     Dates: start: 20250127
  6. KONAKION [Concomitant]
     Active Substance: PHYTONADIONE
     Indication: Abdominal sepsis
     Route: 050
     Dates: start: 20250127

REACTIONS (2)
  - Hypersensitivity [Recovered/Resolved]
  - Back pain [Recovered/Resolved]

NARRATIVE: CASE EVENT DATE: 20250129
